FAERS Safety Report 5078347-8 (Version None)
Quarter: 2006Q3

REPORT INFORMATION
  Report Type: 
  Country: None (occurrence: None)
  Receive Date: 20060811
  Receipt Date: 20060622
  Transmission Date: 20061208
  Serious: Yes (Other)
  Sender: FDA-Public Use
  Company Number: US-GLAXOSMITHKLINE-A0610947A

PATIENT
  Sex: Female

DRUGS (5)
  1. PAXIL [Suspect]
     Indication: ANXIETY DISORDER
     Route: 048
     Dates: start: 19940101
  2. KLONOPIN [Concomitant]
     Dates: start: 19940101
  3. SYNTHROID [Concomitant]
  4. ORTHO TRI-CYCLEN [Concomitant]
  5. XANAX [Concomitant]

REACTIONS (4)
  - DRUG WITHDRAWAL SYNDROME [None]
  - HYPERHIDROSIS [None]
  - SUICIDAL IDEATION [None]
  - WEIGHT INCREASED [None]
